FAERS Safety Report 15675315 (Version 1)
Quarter: 2018Q4

REPORT INFORMATION
  Report Type: Spontaneous
  Country: US (occurrence: US)
  Receive Date: 20181130
  Receipt Date: 20181130
  Transmission Date: 20190205
  Serious: No
  Sender: FDA-Public Use
  Company Number: US-TEVA-2018-US-973926

PATIENT
  Age: 57 Year
  Sex: Female

DRUGS (1)
  1. PROAIR HFA [Suspect]
     Active Substance: ALBUTEROL SULFATE
     Indication: CONTUSION
     Route: 065
     Dates: start: 201809

REACTIONS (2)
  - Product use in unapproved indication [Unknown]
  - Discomfort [Unknown]
